FAERS Safety Report 22599636 (Version 1)
Quarter: 2023Q2

REPORT INFORMATION
  Report Type: Spontaneous
  Country: US (occurrence: US)
  Receive Date: 20230614
  Receipt Date: 20230614
  Transmission Date: 20230721
  Serious: No
  Sender: FDA-Public Use
  Company Number: US-BIOVITRUM-2023-US-010743

PATIENT
  Age: 15 Year
  Sex: Male

DRUGS (2)
  1. KINERET [Suspect]
     Active Substance: ANAKINRA
     Indication: Still^s disease
     Dosage: 100MG/0.67ML SYR ?TWICE DAILY
     Route: 058
     Dates: start: 20230419
  2. KINERET [Suspect]
     Active Substance: ANAKINRA
     Indication: Haemophagocytic lymphohistiocytosis

REACTIONS (8)
  - Injection site swelling [Unknown]
  - Injection site pruritus [Unknown]
  - Injection site reaction [Unknown]
  - White blood cell count decreased [Unknown]
  - Asthenia [Unknown]
  - Intentional product misuse [Unknown]
  - Emotional distress [Unknown]
  - Needle issue [Unknown]

NARRATIVE: CASE EVENT DATE: 20230419
